FAERS Safety Report 6279916-X (Version None)
Quarter: 2009Q3

REPORT INFORMATION
  Report Type: 
  Country: None (occurrence: None)
  Receive Date: 20090723
  Receipt Date: 20090514
  Transmission Date: 20100115
  Serious: No
  Sender: FDA-Public Use
  Company Number: US-AMGEN-KDL347271

PATIENT
  Sex: Female

DRUGS (2)
  1. PROCRIT [Suspect]
     Indication: HEPATITIS C
     Route: 058
     Dates: start: 20090101
  2. INTERFERON [Concomitant]
     Route: 058

REACTIONS (1)
  - THERAPEUTIC RESPONSE DECREASED [None]
